FAERS Safety Report 23736855 (Version 1)
Quarter: 2024Q2

REPORT INFORMATION
  Report Type: Spontaneous
  Country: US (occurrence: US)
  Receive Date: 20240412
  Receipt Date: 20240412
  Transmission Date: 20240716
  Serious: Yes (Other)
  Sender: FDA-Public Use
  Company Number: US-TEVA-VS-3179450

PATIENT
  Sex: Female

DRUGS (1)
  1. UZEDY [Suspect]
     Active Substance: RISPERIDONE
     Indication: Product used for unknown indication
     Dosage: 125 MG
     Route: 065

REACTIONS (5)
  - Suicide threat [Unknown]
  - General physical health deterioration [Unknown]
  - Hallucination, auditory [Unknown]
  - Negative thoughts [Unknown]
  - Therapy non-responder [Unknown]
